FAERS Safety Report 7746589-6 (Version None)
Quarter: 2011Q3

REPORT INFORMATION
  Report Type: 
  Country: None (occurrence: None)
  Receive Date: 20110913
  Receipt Date: 20110902
  Transmission Date: 20111222
  Serious: Yes (Other)
  Sender: FDA-Public Use
  Company Number: US-BAYER-2010-001592

PATIENT
  Age: 33 Year
  Sex: Female
  Weight: 125 kg

DRUGS (11)
  1. YASMIN [Suspect]
     Indication: ORAL CONTRACEPTION
     Dosage: UNK
     Dates: start: 20030401, end: 20070501
  2. LISINOPRIL [Concomitant]
  3. NORVASC [Concomitant]
  4. ZOLOFT [Concomitant]
  5. CIPROFLOXACIN [Concomitant]
     Dosage: 500 MG, BID
     Route: 048
     Dates: start: 20070306
  6. GLUCOPHAGE [Concomitant]
  7. SERTRALINE HYDROCHLORIDE [Concomitant]
     Dosage: 50 MG, UNK
     Route: 048
     Dates: start: 20070423
  8. FLEXERIL [Concomitant]
  9. METFORMIN HCL [Concomitant]
     Indication: DIABETES MELLITUS
     Dosage: 500 MG, BID
     Route: 048
     Dates: start: 20070306
  10. PHENTERMINE [Concomitant]
     Indication: WEIGHT DECREASED
  11. GLIPIZIDE [Concomitant]

REACTIONS (3)
  - PAIN [None]
  - THROMBOSIS [None]
  - DEEP VEIN THROMBOSIS [None]
